FAERS Safety Report 20146077 (Version 2)
Quarter: 2021Q4

REPORT INFORMATION
  Report Type: Report from Study
  Country: DE (occurrence: DE)
  Receive Date: 20211203
  Receipt Date: 20211209
  Transmission Date: 20220303
  Serious: Yes (Hospitalization)
  Sender: FDA-Public Use
  Company Number: DE-TAKEDA-2021TUS076596

PATIENT
  Age: 69 Year
  Sex: Female

DRUGS (15)
  1. TEDUGLUTIDE [Suspect]
     Active Substance: TEDUGLUTIDE
     Indication: Short-bowel syndrome
     Dosage: 0.30 MILLIGRAM, 3/WEEK
     Route: 065
     Dates: start: 20150724, end: 20190501
  2. TEDUGLUTIDE [Suspect]
     Active Substance: TEDUGLUTIDE
     Indication: Short-bowel syndrome
     Dosage: 0.30 MILLIGRAM, 3/WEEK
     Route: 065
     Dates: start: 20150724, end: 20190501
  3. TEDUGLUTIDE [Suspect]
     Active Substance: TEDUGLUTIDE
     Indication: Short-bowel syndrome
     Dosage: 0.30 MILLIGRAM, 3/WEEK
     Route: 065
     Dates: start: 20150724, end: 20190501
  4. TEDUGLUTIDE [Suspect]
     Active Substance: TEDUGLUTIDE
     Indication: Short-bowel syndrome
     Dosage: 0.30 MILLIGRAM, 3/WEEK
     Route: 065
     Dates: start: 20150724, end: 20190501
  5. TEDUGLUTIDE [Suspect]
     Active Substance: TEDUGLUTIDE
     Dosage: 0.3 MILLIGRAM, 3/WEEK
     Route: 065
     Dates: start: 20190523, end: 20210810
  6. TEDUGLUTIDE [Suspect]
     Active Substance: TEDUGLUTIDE
     Dosage: 0.3 MILLIGRAM, 3/WEEK
     Route: 065
     Dates: start: 20190523, end: 20210810
  7. TEDUGLUTIDE [Suspect]
     Active Substance: TEDUGLUTIDE
     Dosage: 0.3 MILLIGRAM, 3/WEEK
     Route: 065
     Dates: start: 20190523, end: 20210810
  8. TEDUGLUTIDE [Suspect]
     Active Substance: TEDUGLUTIDE
     Dosage: 0.3 MILLIGRAM, 3/WEEK
     Route: 065
     Dates: start: 20190523, end: 20210810
  9. TEDUGLUTIDE [Suspect]
     Active Substance: TEDUGLUTIDE
     Dosage: 0.30 MILLIGRAM, 2/WEEK
     Route: 065
     Dates: start: 20210811
  10. TEDUGLUTIDE [Suspect]
     Active Substance: TEDUGLUTIDE
     Dosage: 0.30 MILLIGRAM, 2/WEEK
     Route: 065
     Dates: start: 20210811
  11. TEDUGLUTIDE [Suspect]
     Active Substance: TEDUGLUTIDE
     Dosage: 0.30 MILLIGRAM, 2/WEEK
     Route: 065
     Dates: start: 20210811
  12. TEDUGLUTIDE [Suspect]
     Active Substance: TEDUGLUTIDE
     Dosage: 0.30 MILLIGRAM, 2/WEEK
     Route: 065
     Dates: start: 20210811
  13. TEDUGLUTIDE [Concomitant]
     Active Substance: TEDUGLUTIDE
     Dosage: 0.30 MILLIGRAM, QOD
     Route: 058
     Dates: start: 20150724, end: 20210810
  14. TEDUGLUTIDE [Concomitant]
     Active Substance: TEDUGLUTIDE
     Dosage: 0.30 MILLIGRAM, 2/WEEK
     Route: 058
     Dates: start: 20210810
  15. ASPIRIN [Concomitant]
     Active Substance: ASPIRIN
     Indication: Coeliac artery stenosis
     Dosage: 100 MILLIGRAM, QD
     Route: 048
     Dates: start: 20210615, end: 20210901

REACTIONS (1)
  - Urinary tract infection [Recovered/Resolved]

NARRATIVE: CASE EVENT DATE: 20211011
